FAERS Safety Report 5245787-3 (Version None)
Quarter: 2007Q1

REPORT INFORMATION
  Report Type: 
  Country: None (occurrence: None)
  Receive Date: 20070223
  Receipt Date: 20070213
  Transmission Date: 20070707
  Serious: Yes (Other)
  Sender: FDA-Public Use
  Company Number: CA-PFIZER INC-2007013180

PATIENT
  Age: 58 Year
  Sex: Female

DRUGS (5)
  1. LYRICA [Suspect]
     Indication: BONE PAIN
     Route: 048
  2. PROMETRIUM [Concomitant]
     Route: 048
  3. ELAVIL [Concomitant]
     Route: 048
  4. CALCIUM [Concomitant]
     Route: 048
  5. ALL OTHER THERAPEUTIC PRODUCTS [Concomitant]
     Route: 062

REACTIONS (1)
  - BLOOD PRESSURE INCREASED [None]
